FAERS Safety Report 12770545 (Version 1)
Quarter: 2016Q3

REPORT INFORMATION
  Report Type: Spontaneous
  Country: US (occurrence: US)
  Receive Date: 20160921
  Receipt Date: 20160921
  Transmission Date: 20161109
  Serious: Yes (Other)
  Sender: FDA-Public Use
  Company Number: None

PATIENT
  Age: 91 Year
  Sex: Female
  Weight: 51.75 kg

DRUGS (7)
  1. CIPROFLOXACIN HCL [Suspect]
     Active Substance: CIPROFLOXACIN HYDROCHLORIDE
     Indication: URINARY TRACT INFECTION
     Route: 048
     Dates: start: 20160802, end: 20160816
  2. ASPIRIN. [Concomitant]
     Active Substance: ASPIRIN
  3. SERTRALINE HCL (ZOLOFT) [Concomitant]
  4. QUETIAPINE FUMARATE (SEROQUEL) [Concomitant]
  5. ATENOLOL. [Concomitant]
     Active Substance: ATENOLOL
  6. LOTREL [Concomitant]
     Active Substance: AMLODIPINE BESYLATE\BENAZEPRIL HYDROCHLORIDE
  7. CALCIUM WITH VITIMAN D [Concomitant]

REACTIONS (9)
  - Confusional state [None]
  - Nausea [None]
  - Muscle disorder [None]
  - Cerebrovascular accident [None]
  - Hypoaesthesia [None]
  - Muscular weakness [None]
  - Dysphagia [None]
  - Vomiting [None]
  - Condition aggravated [None]

NARRATIVE: CASE EVENT DATE: 20160903
